FAERS Safety Report 4645015-3 (Version None)
Quarter: 2005Q2

REPORT INFORMATION
  Report Type: 
  Country: None (occurrence: None)
  Receive Date: 20050426
  Receipt Date: 20041224
  Transmission Date: 20051028
  Serious: Yes (Hospitalization)
  Sender: FDA-Public Use
  Company Number: PHNR2004AU01758

PATIENT
  Sex: Female

DRUGS (4)
  1. METSULFON (MSM) [Concomitant]
     Indication: ARTHRALGIA
     Dates: start: 20040901
  2. FEMARA [Suspect]
     Indication: BREAST CANCER METASTATIC
     Dosage: 2.5 MG, QD
     Route: 048
     Dates: start: 20040901
  3. ATACAND [Concomitant]
  4. LOSEC                                   /CAN/ [Concomitant]

REACTIONS (2)
  - CARPAL TUNNEL DECOMPRESSION [None]
  - PARAESTHESIA [None]
